FAERS Safety Report 7921419-8 (Version None)
Quarter: 2011Q4

REPORT INFORMATION
  Report Type: 
  Country: None (occurrence: None)
  Receive Date: 20111117
  Receipt Date: 20110812
  Transmission Date: 20120403
  Serious: No
  Sender: FDA-Public Use
  Company Number: US-BAYER-2011-074925

PATIENT
  Age: 79 Year
  Sex: Female
  Weight: 70 kg

DRUGS (5)
  1. SPIRIVA [Concomitant]
  2. ALEVE (CAPLET) [Suspect]
     Indication: PAIN
     Dosage: 1 DF, ONCE
     Dates: start: 20110811, end: 20110811
  3. SYMBICORT [Concomitant]
  4. NEBULIZER [Concomitant]
  5. XOPENEX [Concomitant]

REACTIONS (8)
  - EPIGASTRIC DISCOMFORT [None]
  - DIZZINESS POSTURAL [None]
  - HEADACHE [None]
  - GASTROOESOPHAGEAL REFLUX DISEASE [None]
  - ABDOMINAL PAIN UPPER [None]
  - MALAISE [None]
  - NAUSEA [None]
  - DIARRHOEA [None]
